FAERS Safety Report 8639221 (Version 2)
Quarter: 2014Q1

REPORT INFORMATION
  Report Type: Spontaneous
  Country: US (occurrence: None)
  Receive Date: 20120323
  Receipt Date: 20130305
  Transmission Date: 20141002
  Serious: Yes (Hospitalization)
  Sender: FDA-Public Use
  Company Number: 163-21880-11101709

PATIENT
  Age: 69 Year
  Sex: Male
  Weight: 114.31 kg

DRUGS (17)
  1. REVLIMID [Suspect]
     Indication: PLASMA CELL MYELOMA
     Dosage: 25 MG, 1 IN 1 D, PO
     Route: 048
     Dates: start: 20110902, end: 20110906
  2. DECADRON (DEXAMETHASONE) [Concomitant]
  3. ALLOPURINOL (ALLOPURINOL) [Concomitant]
  4. ZOMETA (ZOLEDRONIC ACID) [Concomitant]
  5. PLAVIX (CLOPIDOGREL SULFATE) [Concomitant]
  6. LOSARTAN (LOSARTAN) [Concomitant]
  7. ASA (ACETYLSALICYLIC ACID) [Concomitant]
  8. PRAVASTATIN (PRAVASTATIN) [Concomitant]
  9. ATENOLOL (ATENOLOL) [Concomitant]
  10. OMEGA 3 FISH OIL (FISH OIL) [Concomitant]
  11. COLACE (DOCUSATE SODIUM) [Concomitant]
  12. LASIX (FUROSEMIDE) [Concomitant]
  13. KYTRIL (GRANISETRON) [Concomitant]
  14. INSULIN (INSULIN) [Concomitant]
  15. PROTONIX (UNKNOWN) [Concomitant]
  16. KAYEXALATE (SODIUM POLYSTYRENE SULFONATE) [Concomitant]
  17. RESTORIL (TEMAZEPAM) [Concomitant]

REACTIONS (2)
  - Renal failure [None]
  - Dehydration [None]
